FAERS Safety Report 6556709-7 (Version None)
Quarter: 2010Q1

REPORT INFORMATION
  Report Type: 
  Country: None (occurrence: None)
  Receive Date: 20100128
  Receipt Date: 20100123
  Transmission Date: 20100710
  Serious: Yes (Hospitalization, Other)
  Sender: FDA-Public Use
  Company Number: US-BAYER-201010971BCC

PATIENT
  Sex: Male
  Weight: 59 kg

DRUGS (2)
  1. ALEVE [Suspect]
     Indication: SUICIDE ATTEMPT
     Dosage: TOTAL DAILY DOSE: 5280 MG  UNIT DOSE: 220 MG
     Route: 048
     Dates: start: 20100122
  2. PROZAC [Concomitant]
     Route: 065

REACTIONS (4)
  - ABNORMAL BEHAVIOUR [None]
  - OVERDOSE [None]
  - SPEECH DISORDER [None]
  - SUICIDE ATTEMPT [None]
